FAERS Safety Report 5339311-4 (Version None)
Quarter: 2007Q2

REPORT INFORMATION
  Report Type: 
  Country: None (occurrence: None)
  Receive Date: 20070530
  Receipt Date: 20070522
  Transmission Date: 20071010
  Serious: Yes (Hospitalization)
  Sender: FDA-Public Use
  Company Number: CA-GENENTECH-241995

PATIENT
  Sex: Male

DRUGS (7)
  1. RITUXAN [Suspect]
     Indication: B-CELL LYMPHOMA
     Dosage: 440 MG, UNK
     Route: 042
     Dates: start: 20070301
  2. CYCLOPHOSPHAMIDE [Concomitant]
     Indication: B-CELL LYMPHOMA
     Route: 042
     Dates: start: 20070301
  3. DOXORUBICIN HCL [Concomitant]
     Indication: B-CELL LYMPHOMA
     Route: 042
     Dates: start: 20070301
  4. VINCRISTINE [Concomitant]
     Indication: B-CELL LYMPHOMA
     Dates: start: 20070301
  5. PREDNISONE TAB [Concomitant]
     Indication: B-CELL LYMPHOMA
     Dates: start: 20070301
  6. ANTIHYPERTENSIVE DRUG NOS [Concomitant]
     Indication: DRUG USE FOR UNKNOWN INDICATION
  7. ACETAMINOPHEN [Concomitant]
     Indication: DRUG USE FOR UNKNOWN INDICATION
     Dosage: UNK, PRN

REACTIONS (1)
  - FEBRILE NEUTROPENIA [None]
